FAERS Safety Report 16611239 (Version 2)
Quarter: 2019Q3

REPORT INFORMATION
  Report Type: Spontaneous
  Country: IN (occurrence: IN)
  Receive Date: 20190722
  Receipt Date: 20190805
  Transmission Date: 20191004
  Serious: Yes (Life-Threatening, Hospitalization, Other)
  Sender: FDA-Public Use
  Company Number: IN-PFIZER INC-2019306776

PATIENT
  Age: 49 Year
  Sex: Female

DRUGS (8)
  1. VINORELBINE [Concomitant]
     Active Substance: VINORELBINE TARTRATE
     Indication: METASTASES TO LUNG
  2. DOCETAXEL. [Concomitant]
     Active Substance: DOCETAXEL
     Indication: METASTASES TO LUNG
  3. VINORELBINE [Concomitant]
     Active Substance: VINORELBINE TARTRATE
     Indication: BREAST CANCER METASTATIC
     Dosage: UNK, EVERY 3 WEEKS (6 CYCLE, ON DAY 1 AND 8 AT 3 WEEKLY INTERVALS)
     Dates: start: 201610
  4. DOXORUBICIN HCL [Suspect]
     Active Substance: DOXORUBICIN HYDROCHLORIDE
     Indication: BREAST CANCER METASTATIC
     Dosage: UNK, EVERY 3 WEEKS (1 CYCLE, ON DAY 1 EVERY 3 WEEKS)
     Dates: start: 2017
  5. CYCLOPHOSPHAMIDE. [Concomitant]
     Active Substance: CYCLOPHOSPHAMIDE
     Indication: BREAST CANCER METASTATIC
     Dosage: UNK, EVERY 3 WEEKS (1CYCLE, ON DAY 1 EVERY 3 WEEKS)
     Dates: start: 2017
  6. DOCETAXEL. [Concomitant]
     Active Substance: DOCETAXEL
     Indication: BREAST CANCER METASTATIC
     Dosage: UNK, EVERY 3 WEEKS (8 CYCLE, ON DAY 1 AT 3 WEEKLY INTERVALS)
     Dates: start: 201511
  7. CYCLOPHOSPHAMIDE. [Concomitant]
     Active Substance: CYCLOPHOSPHAMIDE
     Indication: METASTASES TO LUNG
  8. TRASTUZUMAB. [Suspect]
     Active Substance: TRASTUZUMAB
     Indication: BREAST CANCER METASTATIC
     Dosage: UNK, EVERY 3 WEEKS (14 CYCLE, ON DAY 1 AT 3 WEEKLY INTERVALS)
     Dates: start: 201511

REACTIONS (2)
  - Cardiac failure [Unknown]
  - Cardiotoxicity [Unknown]
